FAERS Safety Report 13376733 (Version 1)
Quarter: 2017Q1

REPORT INFORMATION
  Report Type: Spontaneous
  Country: KR (occurrence: KR)
  Receive Date: 20170328
  Receipt Date: 20170328
  Transmission Date: 20170429
  Serious: Yes (Other)
  Sender: FDA-Public Use
  Company Number: KR-GE HEALTHCARE LIFE SCIENCES-2017CSU000574

PATIENT

DRUGS (3)
  1. HYDROCHLOROTHIAZIDE. [Concomitant]
     Active Substance: HYDROCHLOROTHIAZIDE
     Indication: HYPERTENSION
     Dosage: 12.5 MG, QD
  2. AMLODIPINE BESILATE [Concomitant]
     Active Substance: AMLODIPINE BESYLATE
     Indication: HYPERTENSION
     Dosage: 5 MG, QD
  3. VISIPAQUE [Suspect]
     Active Substance: IODIXANOL
     Indication: CHEST PAIN
     Dosage: 100 ML, SINGLE
     Route: 013

REACTIONS (1)
  - Hyponatraemia [Recovered/Resolved]
